FAERS Safety Report 8450735-9 (Version None)
Quarter: 2012Q2

REPORT INFORMATION
  Report Type: 
  Country: None (occurrence: None)
  Receive Date: 20120620
  Receipt Date: 20120612
  Transmission Date: 20120825
  Serious: Yes (Hospitalization, Other)
  Sender: FDA-Public Use
  Company Number: US-BAYER-2011-124167

PATIENT
  Age: 18 Year
  Sex: Female
  Weight: 50.34 kg

DRUGS (7)
  1. IBUPROFEN [Concomitant]
     Dosage: 800 MG UNK
     Route: 048
  2. YAZ [Suspect]
     Indication: PREMENSTRUAL SYNDROME
  3. ORTHO TRI-CYCLEN [Concomitant]
     Dosage: UNK
     Dates: start: 20100601
  4. CLARITHROMYCIN [Concomitant]
     Dosage: 500 MG, BID
     Route: 048
  5. BIAXIN [Concomitant]
     Indication: SINUSITIS
  6. YAZ [Suspect]
     Indication: ACNE
     Dosage: UNK
     Dates: start: 20091201, end: 20100401
  7. ACETAMINOPHEN [Concomitant]
     Dosage: 500 MG, PRN
     Route: 048

REACTIONS (7)
  - HEPATITIS [None]
  - PAIN [None]
  - LIVER INJURY [None]
  - BILIARY DYSKINESIA [None]
  - DYSPEPSIA [None]
  - EMOTIONAL DISTRESS [None]
  - GALLBLADDER DISORDER [None]
